FAERS Safety Report 15287018 (Version 1)
Quarter: 2018Q3

REPORT INFORMATION
  Report Type: Spontaneous
  Country: DK (occurrence: DK)
  Receive Date: 20180817
  Receipt Date: 20180817
  Transmission Date: 20181010
  Serious: Yes (Hospitalization, Disabling, Other)
  Sender: FDA-Public Use
  Company Number: DK-BRISTOL-MYERS SQUIBB COMPANY-BMS-2018-076456

PATIENT
  Age: 79 Year
  Sex: Male
  Weight: 68 kg

DRUGS (11)
  1. OMEPRAZOLE. [Concomitant]
     Active Substance: OMEPRAZOLE
     Indication: PROPHYLAXIS AGAINST GASTROINTESTINAL ULCER
     Route: 048
  2. OXYNORM [Concomitant]
     Active Substance: OXYCODONE HYDROCHLORIDE
     Indication: PAIN
     Dosage: 5 MG, UNK
     Route: 048
  3. FURIX [Concomitant]
     Active Substance: FUROSEMIDE
     Indication: DIURETIC THERAPY
     Route: 048
  4. MADOPAR [Concomitant]
     Active Substance: BENSERAZIDE HYDROCHLORIDE\LEVODOPA
     Indication: PARKINSON^S DISEASE
     Dosage: 6 DF, UNK
     Route: 048
     Dates: start: 20110301
  5. ELIQUIS [Suspect]
     Active Substance: APIXABAN
     Indication: THROMBOSIS PROPHYLAXIS
     Dosage: 10 MG, (IN 1 DAY INTERVAL)
     Route: 048
     Dates: start: 20180220, end: 201807
  6. SIMVASTATIN. [Concomitant]
     Active Substance: SIMVASTATIN
     Indication: HYPERCHOLESTEROLAEMIA
     Dosage: 40 MG, 1?DAY INTERVAL
     Route: 048
  7. KALEORID [Concomitant]
     Active Substance: POTASSIUM CHLORIDE
     Indication: BLOOD POTASSIUM DECREASED
     Dosage: 750 MG, UNK
     Route: 048
  8. SERTRALINE [Concomitant]
     Active Substance: SERTRALINE HYDROCHLORIDE
     Indication: DEPRESSION
     Dosage: 50 MG, 1 DAY INTERVAL
     Route: 048
     Dates: start: 20170925
  9. QUININE [Concomitant]
     Active Substance: QUININE
     Indication: RESTLESS LEGS SYNDROME
     Dosage: 200 MG, 1?DAY INTERVAL
     Route: 048
     Dates: start: 20151115
  10. MOVICOL [Concomitant]
     Active Substance: POLYETHYLENE GLYCOL 3350\POTASSIUM CHLORIDE\SODIUM BICARBONATE\SODIUM CHLORIDE
     Indication: CONSTIPATION
     Dosage: 2 DF, 1?DAY INTERVAL
     Route: 048
     Dates: start: 20180222
  11. UNIKALK OSTEO [Concomitant]
     Indication: OSTEOPOROSIS PROPHYLAXIS
     Dosage: 400 MG, 1?DAY INTERVAL
     Route: 048
     Dates: start: 20180305

REACTIONS (4)
  - Paresis [Recovered/Resolved with Sequelae]
  - Basal ganglia haemorrhage [Recovered/Resolved with Sequelae]
  - Speech disorder [Recovered/Resolved with Sequelae]
  - Prescribed overdose [Unknown]

NARRATIVE: CASE EVENT DATE: 20180723
